FAERS Safety Report 16731590 (Version 1)
Quarter: 2019Q3

REPORT INFORMATION
  Report Type: Spontaneous
  Country: US (occurrence: US)
  Receive Date: 20190822
  Receipt Date: 20190822
  Transmission Date: 20191005
  Serious: Yes (Death)
  Sender: FDA-Public Use
  Company Number: US-ARRAY-2019-06181

PATIENT

DRUGS (2)
  1. MEKTOVI [Suspect]
     Active Substance: BINIMETINIB
     Indication: RECTAL CANCER
     Dosage: 45 MG, BID
     Route: 048
     Dates: start: 20190708, end: 201907
  2. BRAFTOVI [Suspect]
     Active Substance: ENCORAFENIB
     Indication: RECTAL CANCER
     Dosage: 450 MG, QD
     Route: 048
     Dates: start: 20190708, end: 201907

REACTIONS (2)
  - Product use in unapproved indication [Unknown]
  - Death [Fatal]

NARRATIVE: CASE EVENT DATE: 201907
